FAERS Safety Report 17166576 (Version 1)
Quarter: 2019Q4

REPORT INFORMATION
  Report Type: Spontaneous
  Country: US (occurrence: US)
  Receive Date: 20191217
  Receipt Date: 20191217
  Transmission Date: 20200122
  Serious: Yes (Hospitalization)
  Sender: FDA-Public Use
  Company Number: US-ZYDUS-044492

PATIENT
  Age: 73 Year
  Sex: Female

DRUGS (7)
  1. PROPOFOL. [Concomitant]
     Active Substance: PROPOFOL
     Dosage: SEDATION?WAS ACHIEVED BY PROPOFOL INFUSION AT A RATE OF 80 MCG/KG/MIN FOR?THE FIRST 87 MIN.
  2. BUPIVACAINE/BUPIVACAINE HYDROCHLORIDE [Suspect]
     Active Substance: BUPIVACAINE HYDROCHLORIDE
     Indication: SPINAL ANAESTHESIA
     Dosage: 0.5% BUPIVACAINE 2.75ML
     Route: 037
  3. EPHEDRINE/EPHEDRINE HYDROCHLORIDE/EPHEDRINE LAEVULINATE/EPHEDRINE SULFATE [Concomitant]
     Indication: PROPHYLAXIS
  4. FENTANYL/FENTANYL CITRATE [Suspect]
     Active Substance: FENTANYL
     Indication: ANALGESIC THERAPY
     Route: 042
  5. CEFAZOLIN/CEFAZOLIN SODIUM [Concomitant]
     Active Substance: CEFAZOLIN SODIUM
  6. MORPHINE/MORPHINE HYDROCHLORIDE/MORPHINE SULFATE/MORPHINE TARTRATE [Suspect]
     Active Substance: MORPHINE\MORPHINE HYDROCHLORIDE\MORPHINE SULFATE\MORPHINE TARTRATE
     Indication: PRODUCT USED FOR UNKNOWN INDICATION
     Route: 037
  7. FENTANYL/FENTANYL CITRATE [Suspect]
     Active Substance: FENTANYL
     Indication: ANALGESIC THERAPY
     Route: 042

REACTIONS (2)
  - Confusional state [Recovered/Resolved]
  - Anaemia [Recovered/Resolved]
